FAERS Safety Report 7068275-0 (Version None)
Quarter: 2010Q4

REPORT INFORMATION
  Report Type: 
  Country: None (occurrence: None)
  Receive Date: 20101028
  Receipt Date: 20101019
  Transmission Date: 20110411
  Serious: Yes (Other)
  Sender: FDA-Public Use
  Company Number: FR-JNJFOC-20100906809

PATIENT
  Age: 59 Year
  Sex: Male

DRUGS (2)
  1. TAVANIC [Suspect]
     Indication: INTERVERTEBRAL DISCITIS
     Route: 048
  2. RIFADIN [Suspect]
     Indication: INTERVERTEBRAL DISCITIS
     Route: 065

REACTIONS (3)
  - ARTHRALGIA [None]
  - JOINT EFFUSION [None]
  - TENDONITIS [None]
